FAERS Safety Report 21106373 (Version 1)
Quarter: 2022Q3

REPORT INFORMATION
  Report Type: Spontaneous
  Country: US (occurrence: US)
  Receive Date: 20220720
  Receipt Date: 20220720
  Transmission Date: 20221026
  Serious: Yes (Other)
  Sender: FDA-Public Use
  Company Number: US-SUNBUM-2022-US-016238

PATIENT
  Age: 17 Month
  Sex: Male
  Weight: 11.79 kg

DRUGS (1)
  1. BABY BUM SPF 50 MINERAL SUNSCREEN FACE STICK [Suspect]
     Active Substance: ZINC OXIDE
     Indication: Therapeutic skin care topical
     Dosage: APPLIED ONCE
     Route: 061
     Dates: start: 20220703, end: 20220703

REACTIONS (6)
  - Application site erythema [Recovering/Resolving]
  - Application site swelling [Recovered/Resolved]
  - Application site vesicles [Recovered/Resolved]
  - Application site exfoliation [Not Recovered/Not Resolved]
  - Second degree chemical burn of skin [Recovering/Resolving]
  - Scab [Not Recovered/Not Resolved]

NARRATIVE: CASE EVENT DATE: 20220701
